FAERS Safety Report 4461471-8 (Version None)
Quarter: 2004Q3

REPORT INFORMATION
  Report Type: 
  Country: None (occurrence: None)
  Receive Date: 20040924
  Receipt Date: 20040903
  Transmission Date: 20050211
  Serious: Yes (Hospitalization)
  Sender: FDA-Public Use
  Company Number: THYM-10280

PATIENT
  Age: 61 Year
  Sex: Female

DRUGS (16)
  1. THYMOGLOBULIN [Suspect]
     Indication: IMMUNOSUPPRESSION
     Dosage: 100 MG QD IV
     Route: 042
     Dates: start: 20040816, end: 20040816
  2. THYMOGLOBULIN [Suspect]
     Indication: IMMUNOSUPPRESSION
     Dosage: 90 MG QD IV
     Route: 042
     Dates: start: 20040817, end: 20040819
  3. BACTRIM [Concomitant]
  4. CELLCEPT [Concomitant]
  5. VALCYTE [Concomitant]
  6. MYCELEX [Concomitant]
  7. COLACE [Concomitant]
  8. STRESS TABS WITH ZINC [Concomitant]
  9. PROGRAF [Concomitant]
  10. PRAVACHOL [Concomitant]
  11. LEVOTHYROXINE SODIUM [Concomitant]
  12. PROTONIX [Concomitant]
  13. FOLIC ACID [Concomitant]
  14. PREDNISONE [Concomitant]
  15. NORVASC [Concomitant]
  16. EVISTA [Concomitant]

REACTIONS (4)
  - BLOOD CREATININE INCREASED [None]
  - HYPERKALAEMIA [None]
  - HYPONATRAEMIA [None]
  - INAPPROPRIATE ANTIDIURETIC HORMONE SECRETION [None]
